FAERS Safety Report 5614999-9 (Version None)
Quarter: 2008Q1

REPORT INFORMATION
  Report Type: 
  Country: None (occurrence: None)
  Receive Date: 20080206
  Receipt Date: 20080128
  Transmission Date: 20080703
  Serious: Yes (Disabling, Other)
  Sender: FDA-Public Use
  Company Number: PHBS2008IT01519

PATIENT
  Age: 69 Year
  Sex: Male

DRUGS (3)
  1. ZOMETA [Suspect]
     Indication: METASTASES TO BONE
     Dosage: 4 MG, QMO
     Route: 042
     Dates: start: 20070115, end: 20070915
  2. ENANTONE [Concomitant]
     Dosage: 11.25 MG/2 ML
     Route: 058
  3. CASODEX [Concomitant]
     Dosage: 50 MG, UNK
     Route: 048

REACTIONS (4)
  - BIOPSY BONE ABNORMAL [None]
  - BONE LESION [None]
  - MOUTH ULCERATION [None]
  - OSTEOMYELITIS [None]
